FAERS Safety Report 6633946-4 (Version None)
Quarter: 2010Q1

REPORT INFORMATION
  Report Type: 
  Country: None (occurrence: None)
  Receive Date: 20100315
  Receipt Date: 20100305
  Transmission Date: 20100710
  Serious: Yes (Hospitalization)
  Sender: FDA-Public Use
  Company Number: US-JNJFOC-20100302165

PATIENT
  Sex: Female

DRUGS (4)
  1. LEVAQUIN [Suspect]
     Indication: DIVERTICULITIS
     Route: 065
  2. REVLIMID [Suspect]
     Indication: MULTIPLE MYELOMA
     Route: 048
  3. REVLIMID [Suspect]
     Route: 048
  4. FLAGYL [Suspect]
     Indication: DIVERTICULITIS
     Route: 065

REACTIONS (2)
  - DIVERTICULITIS [None]
  - RASH PRURITIC [None]
